FAERS Safety Report 26155163 (Version 1)
Quarter: 2025Q4

REPORT INFORMATION
  Report Type: Spontaneous
  Country: EU (occurrence: EU)
  Receive Date: 20251215
  Receipt Date: 20251215
  Transmission Date: 20260118
  Serious: Yes (Hospitalization)
  Sender: ALEXION PHARMACEUTICALS
  Company Number: None

PATIENT
  Age: 85 Year
  Sex: Male

DRUGS (12)
  1. TICAGRELOR [Suspect]
     Active Substance: TICAGRELOR
     Indication: Coronary artery disease
     Dosage: 90 MILLIGRAM, Q12H
     Route: 061
     Dates: start: 202510
  2. ROSUVASTATIN CALCIUM [Suspect]
     Active Substance: ROSUVASTATIN CALCIUM
     Indication: Hyperlipidaemia
     Dosage: 1 TBL IN THE EVENING
     Route: 061
     Dates: start: 202510
  3. ASPIRIN [Concomitant]
     Active Substance: ASPIRIN
     Indication: Coronary artery disease
     Dosage: 1X1
     Route: 061
  4. PANTOPRAZOLE SODIUM [Concomitant]
     Active Substance: PANTOPRAZOLE SODIUM
     Indication: Prophylaxis
     Dosage: 1X1 IN THE MORNING
     Route: 061
  5. EUTHYROX [Concomitant]
     Active Substance: LEVOTHYROXINE SODIUM
     Indication: Hypothyroidism
     Dosage: 1X1 IN THE MORNING
     Route: 061
  6. SPIRIVA RESPIMAT [Concomitant]
     Active Substance: TIOTROPIUM BROMIDE
     Indication: Asthma
     Dosage: 2 INHALATIONS IN THE MORNING
  7. SERETIDE [Concomitant]
     Active Substance: FLUTICASONE PROPIONATE\SALMETEROL XINAFOATE
     Indication: Asthma
     Dosage: STRENGHT: 25 MICROGRAMS/250 MICROGRAMS/INHALATIONDOSING: 2X1
  8. FLUTICASONE PROPIONATE [Concomitant]
     Active Substance: FLUTICASONE PROPIONATE
     Dosage: STRENGHT: 50 MICROGRAMS/SPRYDOSING: 2 SPRAYS IN EACH NOSTRIL 2X A DAY
  9. NITROLINGUAL [Concomitant]
     Active Substance: NITROGLYCERIN
     Dosage: STRENGHT: 0,4 MG/SPRAYDOSING: 2 SPRAYS IF NECESSARY
  10. Nitrofix [Concomitant]
     Indication: Angina pectoris
     Dosage: STRENGHT: 15 MG/24 URDOSING: 1 PATCH OVERNIGHT
  11. TRIMETAZIDINE DIHYDROCHLORIDE [Concomitant]
     Active Substance: TRIMETAZIDINE DIHYDROCHLORIDE
     Indication: Angina pectoris
     Dosage: 1 TBL IN THE MORNING
     Route: 061
  12. Tezulix [Concomitant]
     Indication: Angina pectoris
     Dosage: 1 TBL  EVERY 12H
     Route: 061

REACTIONS (2)
  - Myopathy [Recovering/Resolving]
  - Labelled drug-drug interaction issue [Recovering/Resolving]

NARRATIVE: CASE EVENT DATE: 20251001
